FAERS Safety Report 13080175 (Version 1)
Quarter: 2017Q1

REPORT INFORMATION
  Report Type: Report from Study
  Country: FR (occurrence: FR)
  Receive Date: 20170103
  Receipt Date: 20170103
  Transmission Date: 20170428
  Serious: Yes (Hospitalization, Other)
  Sender: FDA-Public Use
  Company Number: FR-GLAXOSMITHKLINE-FR2014GSK055348

PATIENT
  Age: 31 Year
  Sex: Male

DRUGS (3)
  1. HUMIRA [Concomitant]
     Active Substance: ADALIMUMAB
     Dosage: UNK
     Dates: start: 20150819
  2. ACITRETIN. [Suspect]
     Active Substance: ACITRETIN
     Indication: HIDRADENITIS
     Dosage: 10 MG, QD
     Dates: start: 20150806
  3. ROACCUTANE [Concomitant]
     Active Substance: ISOTRETINOIN
     Dosage: UNK
     Dates: start: 20150503, end: 20150805

REACTIONS (2)
  - Hypercalcaemia [Recovered/Resolved]
  - Hidradenitis [Recovered/Resolved]

NARRATIVE: CASE EVENT DATE: 201506
